FAERS Safety Report 21060032 (Version 2)
Quarter: 2022Q3

REPORT INFORMATION
  Report Type: Spontaneous
  Country: CN (occurrence: None)
  Receive Date: 20220708
  Receipt Date: 20220729
  Transmission Date: 20221026
  Serious: Yes (Other)
  Sender: FDA-Public Use
  Company Number: 2022A242203

PATIENT
  Age: 28602 Day
  Sex: Female
  Weight: 69 kg

DRUGS (2)
  1. TICAGRELOR [Suspect]
     Active Substance: TICAGRELOR
     Indication: Coagulopathy
     Route: 048
     Dates: start: 20220619, end: 20220630
  2. ASPIRIN [Concomitant]
     Active Substance: ASPIRIN
     Indication: Coagulopathy
     Route: 048
     Dates: start: 20220619, end: 20220630

REACTIONS (2)
  - Asphyxia [Unknown]
  - Dyspnoea paroxysmal nocturnal [Recovering/Resolving]

NARRATIVE: CASE EVENT DATE: 20220627
